FAERS Safety Report 9653502 (Version 1)
Quarter: 2013Q4

REPORT INFORMATION
  Report Type: Spontaneous
  Country: US (occurrence: None)
  Receive Date: 20131028
  Receipt Date: 20131028
  Transmission Date: 20140711
  Serious: Yes (Disabling)
  Sender: FDA-Public Use
  Company Number: None

PATIENT
  Age: 76 Year
  Sex: Female
  Weight: 59.88 kg

DRUGS (1)
  1. CLINDAMYCIN [Suspect]
     Indication: DENTAL CARE
     Dosage: 1 PILL
     Route: 048
     Dates: start: 20131001, end: 20131007

REACTIONS (3)
  - Rash [None]
  - Pruritus [None]
  - Rash [None]
